FAERS Safety Report 24623139 (Version 1)
Quarter: 2024Q4

REPORT INFORMATION
  Report Type: Spontaneous
  Country: US (occurrence: US)
  Receive Date: 20241115
  Receipt Date: 20241115
  Transmission Date: 20250114
  Serious: Yes (Other)
  Sender: SPECGX
  Company Number: US-SPECGX-T202402236

PATIENT
  Age: 18 Month
  Weight: 8 kg

DRUGS (3)
  1. METHADONE [Suspect]
     Active Substance: METHADONE HYDROCHLORIDE
     Indication: Pain
     Dosage: 20 MILLIGRAM BY GASTROSTOMY TUBE
     Route: 065
  2. METHADONE [Suspect]
     Active Substance: METHADONE HYDROCHLORIDE
     Dosage: 0.5 TO 7.1 MG/KG/D OVER 2 WEEKS BY GASTROSTOMY TUBE
     Route: 065
  3. METHADONE [Suspect]
     Active Substance: METHADONE HYDROCHLORIDE
     Dosage: 9.4 MG/KG/D BY GASTROSTOMY TUBE
     Route: 065

REACTIONS (5)
  - Mechanical ventilation [Unknown]
  - Tracheostomy [Unknown]
  - Respiratory failure [Unknown]
  - Incorrect route of product administration [Unknown]
  - Product use issue [Unknown]
